FAERS Safety Report 6088889-4 (Version None)
Quarter: 2009Q1

REPORT INFORMATION
  Report Type: 
  Country: None (occurrence: None)
  Receive Date: 20090220
  Receipt Date: 20090220
  Transmission Date: 20090719
  Serious: No
  Sender: FDA-Public Use
  Company Number: None

PATIENT
  Age: 71 Year
  Sex: Male

DRUGS (1)
  1. METFORMIN 500MG TABLETS EMCURE (TEVA) [Suspect]
     Indication: DIABETES MELLITUS
     Dosage: 1 CAPSULE TWICE A DAY BY MOUTH
     Route: 048
     Dates: start: 20081209

REACTIONS (1)
  - URINE ODOUR ABNORMAL [None]
